FAERS Safety Report 6304637-4 (Version None)
Quarter: 2009Q3

REPORT INFORMATION
  Report Type: 
  Country: None (occurrence: None)
  Receive Date: 20090811
  Receipt Date: 20090803
  Transmission Date: 20100115
  Serious: Yes (Hospitalization)
  Sender: FDA-Public Use
  Company Number: SE-JNJFOC-20090800571

PATIENT
  Age: 15 Year
  Sex: Female

DRUGS (1)
  1. CONCERTA [Suspect]
     Indication: DRUG USE FOR UNKNOWN INDICATION
     Dosage: 8-10 DOSES A TOTAL (TOTAL DOSAGE 288 MG - 360 MG)
     Route: 048

REACTIONS (5)
  - DRY THROAT [None]
  - NAUSEA [None]
  - OVERDOSE [None]
  - PALPITATIONS [None]
  - TACHYCARDIA [None]
